FAERS Safety Report 5554936-9 (Version None)
Quarter: 2007Q4

REPORT INFORMATION
  Report Type: 
  Country: None (occurrence: None)
  Receive Date: 20071213
  Receipt Date: 20071204
  Transmission Date: 20080405
  Serious: Yes (Hospitalization)
  Sender: FDA-Public Use
  Company Number: FR-ASTRAZENECA-2007CG01719

PATIENT
  Age: 27369 Day
  Sex: Female

DRUGS (4)
  1. INEXIUM [Suspect]
     Route: 048
     Dates: end: 20071018
  2. MORPHINE [Suspect]
     Route: 042
  3. CELECTOL [Suspect]
     Route: 048
     Dates: end: 20071018
  4. KARDEGIC [Suspect]
     Route: 048
     Dates: end: 20071018

REACTIONS (1)
  - ILEUS [None]
